FAERS Safety Report 7549704-2 (Version None)
Quarter: 2011Q2

REPORT INFORMATION
  Report Type: 
  Country: None (occurrence: None)
  Receive Date: 20110615
  Receipt Date: 20110613
  Transmission Date: 20111010
  Serious: Yes (Hospitalization, Other)
  Sender: FDA-Public Use
  Company Number: DE-BRISTOL-MYERS SQUIBB COMPANY-15089188

PATIENT
  Age: 77 Year
  Sex: Male

DRUGS (2)
  1. WARFARIN SODIUM [Suspect]
     Indication: THROMBOSIS PROPHYLAXIS
     Dosage: INTERRUPT/RESTART:30APR10/07MAY10;20SEP10/24SEP10;09DEC10/21DEC10
     Route: 048
     Dates: start: 20091127
  2. PLACEBO [Suspect]
     Indication: THROMBOSIS PROPHYLAXIS
     Dosage: INTERPTD ON 30AP10,RESTART:7MAY10,API/PLA INTER:21SEP09,WAR/PLA INTERRUPT:20SEP10,RE 24SEP,21DEC10
     Route: 048
     Dates: start: 20091127

REACTIONS (1)
  - BLADDER TRANSITIONAL CELL CARCINOMA [None]
